FAERS Safety Report 6525042-1 (Version None)
Quarter: 2010Q1

REPORT INFORMATION
  Report Type: 
  Country: None (occurrence: None)
  Receive Date: 20100104
  Receipt Date: 20091228
  Transmission Date: 20100710
  Serious: Yes (Other)
  Sender: FDA-Public Use
  Company Number: ES-ROXANE LABORATORIES, INC.-2009-RO-01291RO

PATIENT
  Age: 14 Year
  Sex: Male

DRUGS (8)
  1. METHOTREXATE [Suspect]
     Indication: PRECURSOR T-LYMPHOBLASTIC LYMPHOMA/LEUKAEMIA RECURRENT
  2. METHOTREXATE [Suspect]
  3. ONDANSETRON [Suspect]
     Indication: PRECURSOR T-LYMPHOBLASTIC LYMPHOMA/LEUKAEMIA RECURRENT
  4. FLUCONAZOLE [Suspect]
     Indication: OROPHARYNGEAL CANDIDIASIS
  5. GLUTAMINE [Suspect]
     Indication: MUCOSAL INFLAMMATION
     Route: 048
  6. FOLINIC ACID [Suspect]
     Indication: SUPPORTIVE CARE
  7. CARBOXYPEPTIDASE G2 [Concomitant]
     Indication: RENAL FAILURE ACUTE
     Route: 042
  8. CARBOXYPEPTIDASE G2 [Concomitant]
     Indication: DRUG TOXICITY
     Route: 042

REACTIONS (5)
  - DRUG INTERACTION [None]
  - DRUG TOXICITY [None]
  - MUCOSAL INFLAMMATION [None]
  - OROPHARYNGEAL CANDIDIASIS [None]
  - RENAL FAILURE ACUTE [None]
